FAERS Safety Report 16275187 (Version 1)
Quarter: 2019Q2

REPORT INFORMATION
  Report Type: Spontaneous
  Country: US (occurrence: US)
  Receive Date: 20190503
  Receipt Date: 20190503
  Transmission Date: 20190711
  Serious: Yes (Hospitalization)
  Sender: FDA-Public Use
  Company Number: None

PATIENT
  Age: 80 Year
  Sex: Female

DRUGS (5)
  1. VIT C , SIMVASTATIN, FLECAINIDE, FOLIC ACID, WARFARIN [Concomitant]
  2. SILDENAFIL. [Suspect]
     Active Substance: SILDENAFIL
     Indication: PULMONARY ARTERIAL HYPERTENSION
     Dosage: ?          OTHER FREQUENCY:3 TIMES DAILY;?
     Route: 048
     Dates: start: 20180123
  3. VIT B12, METHENAM, LORATADINE, ASPIRIN, CALCIUM [Concomitant]
  4. VERAPAMIL, POTASSIUM, FOROSEMIDE, PANTOPRAZOLE [Concomitant]
  5. FERROUS SULF, TRACLEER [Concomitant]

REACTIONS (1)
  - Urinary tract infection [None]

NARRATIVE: CASE EVENT DATE: 20190426
